FAERS Safety Report 4705739-6 (Version None)
Quarter: 2005Q2

REPORT INFORMATION
  Report Type: 
  Country: None (occurrence: None)
  Receive Date: 20050629
  Receipt Date: 20050613
  Transmission Date: 20051028
  Serious: Yes (Death, Hospitalization, Other)
  Sender: FDA-Public Use
  Company Number: 2005-00098

PATIENT
  Age: 51 Year
  Sex: Male
  Weight: 76 kg

DRUGS (8)
  1. VELCADE [Suspect]
     Indication: MULTIPLE MYELOMA
     Dosage: 1.30 MG/M2, 2/WEEK, INTRAVENOUS
     Route: 042
     Dates: start: 20040614, end: 20040823
  2. ADRIAMYCIN PFS [Suspect]
     Indication: MULTIPLE MYELOMA
     Dosage: UNKNOWN
     Route: 065
     Dates: start: 20041122, end: 20041122
  3. DEXAMETHASONE [Suspect]
     Indication: MULTIPLE MYELOMA
     Dosage: UNKNOWN
     Route: 065
     Dates: start: 20041122, end: 20041122
  4. VALACYCLOVIR HCL [Concomitant]
  5. FLUCONAZOLE [Concomitant]
  6. LANSOPRAZOLE [Concomitant]
  7. FLUDROCORTISONE ACETATE [Concomitant]
  8. PENTAMIDINE              (PENTAMIDINE) [Concomitant]

REACTIONS (6)
  - CONSTIPATION [None]
  - DIARRHOEA [None]
  - NEUROPATHY PERIPHERAL [None]
  - PANCYTOPENIA [None]
  - RENAL IMPAIRMENT [None]
  - SEPSIS [None]
